FAERS Safety Report 6546994-X (Version None)
Quarter: 2010Q1

REPORT INFORMATION
  Report Type: 
  Country: None (occurrence: None)
  Receive Date: 20100122
  Receipt Date: 20100114
  Transmission Date: 20100710
  Serious: Yes (Life-Threatening, Hospitalization)
  Sender: FDA-Public Use
  Company Number: B0379621A

PATIENT
  Age: 9 Year
  Sex: Female
  Weight: 23.9 kg

DRUGS (2)
  1. CEFTAZIDIME [Suspect]
     Indication: CYSTIC FIBROSIS
     Route: 042
     Dates: end: 20050303
  2. TAZOCIN [Suspect]
     Indication: CYSTIC FIBROSIS
     Dosage: 9MG PER DAY
     Route: 042
     Dates: end: 20050303

REACTIONS (1)
  - THROMBOCYTOPENIA [None]
